FAERS Safety Report 6297761-6 (Version None)
Quarter: 2009Q3

REPORT INFORMATION
  Report Type: 
  Country: None (occurrence: None)
  Receive Date: 20090805
  Receipt Date: 20090722
  Transmission Date: 20100115
  Serious: Yes (Life-Threatening, Other)
  Sender: FDA-Public Use
  Company Number: US-MYLANLABS-2009S1000688

PATIENT
  Age: 61 Year
  Sex: Female
  Weight: 72.8 kg

DRUGS (18)
  1. CLOZAPINE [Suspect]
     Indication: SCHIZOAFFECTIVE DISORDER
  2. CLOZAPINE [Suspect]
  3. SYNTHROID [Concomitant]
  4. PREVACID [Concomitant]
  5. LASIX [Concomitant]
  6. ALBUTEROL [Concomitant]
  7. CALCIUM [Concomitant]
  8. MULTI-VITAMIN [Concomitant]
  9. THEOPHYLLINE [Concomitant]
  10. HUMULIN /00646001/ [Concomitant]
  11. ATIVAN [Concomitant]
  12. LAMICTAL [Concomitant]
  13. COGENTIN [Concomitant]
  14. COUMADIN [Concomitant]
  15. POTASSIUM CHLORIDE [Concomitant]
  16. CYMBALTA [Concomitant]
  17. DEPAKOTE [Concomitant]
  18. FIBERCON /00567701/ [Concomitant]

REACTIONS (3)
  - GRANULOCYTOPENIA [None]
  - LEUKOPENIA [None]
  - SUICIDAL IDEATION [None]
